FAERS Safety Report 15593826 (Version 1)
Quarter: 2018Q4

REPORT INFORMATION
  Report Type: Spontaneous
  Country: US (occurrence: US)
  Receive Date: 20181107
  Receipt Date: 20181107
  Transmission Date: 20190205
  Serious: No
  Sender: FDA-Public Use
  Company Number: US-TARO-2018TAR00767

PATIENT
  Age: 50 Year
  Sex: Female
  Weight: 65.31 kg

DRUGS (1)
  1. DICLOFENAC SODIUM GEL 3% [Suspect]
     Active Substance: DICLOFENAC SODIUM
     Indication: NEURALGIA
     Dosage: SPARINGLY, UNK
     Route: 061
     Dates: start: 20180909, end: 20180909

REACTIONS (2)
  - Drug ineffective for unapproved indication [Recovered/Resolved]
  - Insomnia [Unknown]

NARRATIVE: CASE EVENT DATE: 20180909
